FAERS Safety Report 14917503 (Version 1)
Quarter: 2018Q2

REPORT INFORMATION
  Report Type: Spontaneous
  Country: GB (occurrence: GB)
  Receive Date: 20180521
  Receipt Date: 20180521
  Transmission Date: 20180711
  Serious: Yes (Hospitalization)
  Sender: FDA-Public Use
  Company Number: GB-009507513-1805GBR007091

PATIENT
  Age: 79 Year
  Sex: Male

DRUGS (2)
  1. SITAGLIPTIN PHOSPHATE [Suspect]
     Active Substance: SITAGLIPTIN PHOSPHATE
     Dosage: TAKE TWO TABLETS IN THE MORNING, CRUSH AND MIX WITH FOOD.
     Route: 048
     Dates: start: 20180406, end: 20180421
  2. SERTRALINE HYDROCHLORIDE. [Concomitant]
     Active Substance: SERTRALINE HYDROCHLORIDE
     Dosage: 200 MG, QD

REACTIONS (2)
  - Gastrointestinal obstruction [Recovering/Resolving]
  - Drug dispensing error [Unknown]

NARRATIVE: CASE EVENT DATE: 20180406
